FAERS Safety Report 6614927-3 (Version None)
Quarter: 2010Q1

REPORT INFORMATION
  Report Type: 
  Country: None (occurrence: None)
  Receive Date: 20100305
  Receipt Date: 20100301
  Transmission Date: 20100710
  Serious: Yes (Other)
  Sender: FDA-Public Use
  Company Number: US-ASTRAZENECA-2009UW20484

PATIENT
  Age: 564 Month
  Sex: Female
  Weight: 83 kg

DRUGS (7)
  1. SEROQUEL [Suspect]
     Indication: DEPRESSION
     Dosage: 200 MG NIGHT/100 MG 2X DAY
     Route: 048
     Dates: start: 20050401, end: 20090101
  2. SEROQUEL [Suspect]
     Indication: SLEEP DISORDER
     Dosage: 200 MG NIGHT/100 MG 2X DAY
     Route: 048
     Dates: start: 20050401, end: 20090101
  3. CYMBALTA [Concomitant]
     Indication: DEPRESSION
  4. CYMBALTA [Concomitant]
     Indication: POST-TRAUMATIC STRESS DISORDER
  5. BUSBAR [Concomitant]
     Indication: DEPRESSION
     Dosage: 15 MG HALF A TABLET 2XD
  6. BUSBAR [Concomitant]
     Indication: POST-TRAUMATIC STRESS DISORDER
     Dosage: 15 MG HALF A TABLET 2XD
  7. LIPITOR [Concomitant]

REACTIONS (5)
  - BLOOD CHOLESTEROL INCREASED [None]
  - CARDIAC DISORDER [None]
  - HYPERLIPIDAEMIA [None]
  - MYOCARDIAL INFARCTION [None]
  - TYPE 2 DIABETES MELLITUS [None]
